FAERS Safety Report 18552064 (Version 5)
Quarter: 2021Q2

REPORT INFORMATION
  Report Type: Report from Study
  Country: None (occurrence: CA)
  Receive Date: 20201126
  Receipt Date: 20210406
  Transmission Date: 20210717
  Serious: Yes (Hospitalization, Other)
  Sender: FDA-Public Use
  Company Number: CA-ABBVIE-20K-028-3664567-00

PATIENT
  Age: 44 Year
  Sex: Male
  Weight: 93.07 kg

DRUGS (4)
  1. HUMIRA [Suspect]
     Active Substance: ADALIMUMAB
     Route: 058
  2. HUMIRA [Suspect]
     Active Substance: ADALIMUMAB
     Indication: CROHN^S DISEASE
     Route: 058
     Dates: start: 20191125
  3. IMURAN [Concomitant]
     Active Substance: AZATHIOPRINE
     Indication: PRODUCT USED FOR UNKNOWN INDICATION
     Route: 048
  4. METHANOL [Concomitant]
     Active Substance: METHYL ALCOHOL
     Indication: PRODUCT USED FOR UNKNOWN INDICATION
     Route: 048

REACTIONS (12)
  - Crohn^s disease [Not Recovered/Not Resolved]
  - Therapeutic product effect decreased [Unknown]
  - Discomfort [Not Recovered/Not Resolved]
  - Drug level decreased [Not Recovered/Not Resolved]
  - Pain [Unknown]
  - Abdominal distension [Recovered/Resolved]
  - Ileal stenosis [Not Recovered/Not Resolved]
  - Terminal ileitis [Unknown]
  - Inflammation [Recovering/Resolving]
  - Crohn^s disease [Recovered/Resolved]
  - Small intestinal obstruction [Unknown]
  - Malaise [Not Recovered/Not Resolved]

NARRATIVE: CASE EVENT DATE: 202011
